FAERS Safety Report 4836802-7 (Version None)
Quarter: 2005Q4

REPORT INFORMATION
  Report Type: 
  Country: None (occurrence: None)
  Receive Date: 20051123
  Receipt Date: 20050929
  Transmission Date: 20060501
  Serious: Yes (Hospitalization, Other)
  Sender: FDA-Public Use
  Company Number: US-MERCK-0510USA00363

PATIENT
  Age: 48 Year
  Sex: Male
  Weight: 105 kg

DRUGS (22)
  1. VIOXX [Suspect]
     Indication: BACK PAIN
     Route: 048
     Dates: start: 19990101, end: 20040801
  2. VIOXX [Suspect]
     Indication: ARTHRALGIA
     Route: 048
     Dates: start: 19990101, end: 20040801
  3. ATENOLOL [Concomitant]
     Route: 065
  4. ULTRAM [Concomitant]
     Route: 065
  5. LIPITOR [Concomitant]
     Route: 065
  6. GLUCOPHAGE [Concomitant]
     Route: 065
  7. ASPIRIN [Concomitant]
     Route: 065
  8. ACIPHEX [Concomitant]
     Route: 065
  9. ZOVIRAX [Concomitant]
     Route: 065
  10. LISINOPRIL [Concomitant]
     Route: 065
  11. PLAVIX [Concomitant]
     Route: 065
  12. LEVAQUIN [Concomitant]
     Route: 065
  13. CRESTOR [Concomitant]
     Route: 065
  14. CARTIA (DILTIAZEM HYDROCHLORIDE) [Concomitant]
     Route: 065
  15. ACETAMINOPHEN AND PROPOXYPHENE HYDROCHLORIDE [Concomitant]
     Route: 065
  16. DIGOXIN [Concomitant]
     Route: 065
  17. REGLAN [Concomitant]
     Route: 065
  18. NITROQUICK [Concomitant]
     Route: 065
  19. LAMISIL [Concomitant]
     Route: 065
  20. CLONAZEPAM [Concomitant]
     Route: 065
  21. NEURONTIN [Concomitant]
     Route: 065
  22. TRIAMTERENE [Concomitant]
     Route: 065

REACTIONS (7)
  - ABDOMINAL PAIN UPPER [None]
  - CARDIAC FAILURE CONGESTIVE [None]
  - CARDIOVASCULAR DISORDER [None]
  - CHEST PAIN [None]
  - CORONARY ARTERY DISEASE [None]
  - PULMONARY EMBOLISM [None]
  - SLEEP DISORDER [None]
